FAERS Safety Report 4541579-9 (Version None)
Quarter: 2004Q4

REPORT INFORMATION
  Report Type: 
  Country: None (occurrence: None)
  Receive Date: 20041227
  Receipt Date: 20041221
  Transmission Date: 20050328
  Serious: Yes (Death, Other)
  Sender: FDA-Public Use
  Company Number: USA-2004-0018072

PATIENT
  Age: 41 Year
  Sex: Male

DRUGS (5)
  1. MORPHINE SULFATE [Suspect]
     Indication: METASTATIC NEOPLASM
  2. DURAGESIC [Suspect]
  3. ETHANOL      (ETHANOL) [Suspect]
     Dosage: ORAL
     Route: 048
  4. AMPHETAMINE SULFATE TAB [Suspect]
  5. CANNABINOIDS [Suspect]

REACTIONS (10)
  - APNOEA [None]
  - CYANOSIS [None]
  - DRUG ABUSER [None]
  - DRUG TOXICITY [None]
  - HEPATITIS CHRONIC ACTIVE [None]
  - LYMPHADENOPATHY [None]
  - MULTIPLE DRUG OVERDOSE [None]
  - PETECHIAE [None]
  - PULMONARY OEDEMA [None]
  - WOUND [None]
